FAERS Safety Report 16769612 (Version 5)
Quarter: 2020Q1

REPORT INFORMATION
  Report Type: Report from Study
  Country: None (occurrence: US)
  Receive Date: 20190903
  Receipt Date: 20200117
  Transmission Date: 20200409
  Serious: Yes (Hospitalization, Other)
  Sender: FDA-Public Use
  Company Number: US-ABBVIE-18K-163-2542889-00

PATIENT
  Sex: Female
  Weight: 77.63 kg

DRUGS (4)
  1. JANUVIA [Concomitant]
     Active Substance: SITAGLIPTIN PHOSPHATE
     Indication: TYPE 2 DIABETES MELLITUS
  2. HUMIRA [Suspect]
     Active Substance: ADALIMUMAB
     Indication: PSORIATIC ARTHROPATHY
  3. HUMIRA [Suspect]
     Active Substance: ADALIMUMAB
     Indication: RHEUMATOID ARTHRITIS
     Route: 058
     Dates: start: 2009
  4. VITAMIN D [Concomitant]
     Active Substance: VITAMIN D NOS
     Indication: VITAMIN SUPPLEMENTATION

REACTIONS (16)
  - Gastrooesophageal reflux disease [Unknown]
  - Arthralgia [Unknown]
  - Blood disorder [Unknown]
  - Bone marrow disorder [Not Recovered/Not Resolved]
  - Haematochezia [Recovered/Resolved]
  - Red blood cell count decreased [Recovering/Resolving]
  - Fatigue [Not Recovered/Not Resolved]
  - Rash [Unknown]
  - Proteinuria [Recovering/Resolving]
  - Injection site pain [Unknown]
  - Melaena [Not Recovered/Not Resolved]
  - Gastrointestinal haemorrhage [Not Recovered/Not Resolved]
  - Asthenia [Not Recovered/Not Resolved]
  - Swelling [Recovering/Resolving]
  - Injection site haemorrhage [Unknown]
  - Infected bite [Unknown]

NARRATIVE: CASE EVENT DATE: 2015
